FAERS Safety Report 4745267-5 (Version None)
Quarter: 2005Q3

REPORT INFORMATION
  Report Type: 
  Country: None (occurrence: None)
  Receive Date: 20050812
  Receipt Date: 20050802
  Transmission Date: 20060218
  Serious: Yes (Life-Threatening)
  Sender: FDA-Public Use
  Company Number: DEU-2005-0001605

PATIENT
  Age: 70 Year
  Sex: Female
  Weight: 50 kg

DRUGS (8)
  1. OXYCODONE HCL [Suspect]
     Indication: POSTOPERATIVE ANALGESIA
     Dosage: 10 MG, SINGLE, ORAL
     Route: 048
     Dates: start: 20050707
  2. SUFENTA [Suspect]
     Indication: ANAESTHESIA
     Dosage: 40 MG, INTRAVENOUS
     Route: 042
     Dates: start: 20050707, end: 20050707
  3. DIPIDOLOR (PIRITRAMIDE) [Suspect]
     Indication: ANAESTHESIA
     Dosage: 10.5 MG
     Dates: start: 20050707, end: 20050707
  4. VOLTAREN RESINAT ^GEIGY^ (DICOFENAC RESINATE) [Concomitant]
  5. PROPOFOL [Concomitant]
  6. DORMICUM TABLET ^ROCHE^ (MIDAZOLAM MALEATE) [Concomitant]
  7. NEXIUM [Concomitant]
  8. NOCTAMID (LORMETAZEPAM) [Concomitant]

REACTIONS (5)
  - CYANOSIS [None]
  - DRUG INTERACTION [None]
  - LOSS OF CONSCIOUSNESS [None]
  - PROCEDURAL PAIN [None]
  - RESPIRATORY ARREST [None]
